FAERS Safety Report 10065745 (Version 1)
Quarter: 2014Q2

REPORT INFORMATION
  Report Type: Spontaneous
  Country: US (occurrence: US)
  Receive Date: 20140408
  Receipt Date: 20140408
  Transmission Date: 20141212
  Serious: Yes (Other)
  Sender: FDA-Public Use
  Company Number: US-JNJFOC-20140317009

PATIENT
  Sex: Male

DRUGS (2)
  1. TYLENOL UNSPECIFIED [Suspect]
     Indication: INFLAMMATION
     Route: 064
  2. TYLENOL UNSPECIFIED [Suspect]
     Indication: PYREXIA
     Route: 064

REACTIONS (2)
  - Attention deficit/hyperactivity disorder [Not Recovered/Not Resolved]
  - Foetal exposure during pregnancy [Unknown]
